FAERS Safety Report 10653410 (Version 1)
Quarter: 2014Q4

REPORT INFORMATION
  Report Type: Spontaneous
  Country: GR (occurrence: GR)
  Receive Date: 20141215
  Receipt Date: 20141215
  Transmission Date: 20150529
  Serious: Yes (Other)
  Sender: FDA-Public Use
  Company Number: GR-ROCHE-1506029

PATIENT
  Age: 69 Year
  Sex: Male

DRUGS (5)
  1. RIBAVIRIN. [Suspect]
     Active Substance: RIBAVIRIN
     Route: 048
  2. RITONAVIR. [Suspect]
     Active Substance: RITONAVIR
     Indication: ACUTE RESPIRATORY DISTRESS SYNDROME
     Route: 048
  3. PEGINTERFERON ALFA-2A [Suspect]
     Active Substance: PEGINTERFERON ALFA-2A
     Indication: ACUTE RESPIRATORY DISTRESS SYNDROME
     Route: 058
  4. RIBAVIRIN. [Suspect]
     Active Substance: RIBAVIRIN
     Indication: ACUTE RESPIRATORY DISTRESS SYNDROME
     Dosage: LOADING DOSE:
     Route: 048
  5. LOPINAVIR [Suspect]
     Active Substance: LOPINAVIR
     Indication: ACUTE RESPIRATORY DISTRESS SYNDROME
     Route: 048

REACTIONS (3)
  - Jaundice [Unknown]
  - Hyperbilirubinaemia [Unknown]
  - Acute kidney injury [Unknown]
